FAERS Safety Report 13275324 (Version 1)
Quarter: 2017Q1

REPORT INFORMATION
  Report Type: Spontaneous
  Country: FI (occurrence: FI)
  Receive Date: 20170228
  Receipt Date: 20170228
  Transmission Date: 20170428
  Serious: Yes (Other)
  Sender: FDA-Public Use
  Company Number: FI-BAXTER-2017BAX008070

PATIENT
  Age: 65 Year
  Sex: Male

DRUGS (5)
  1. NATRIUMKLORID BAXTER 9 MG/ML INFUUSIONESTE, LIUOS [Suspect]
     Active Substance: SODIUM CHLORIDE
     Indication: RENAL REPLACEMENT THERAPY
     Dosage: FOR RINSING
     Route: 010
     Dates: start: 201702, end: 201702
  2. HEMOSOL B0 HEMOFILTRAATIO- JA HEMODIALYYSINESTE [Suspect]
     Active Substance: CALCIUM CHLORIDE\DEXTROSE MONOHYDRATE\LACTIC ACID\MAGNESIUM CHLORIDE\POTASSIUM CHLORIDE\SODIUM BICARBONATE\SODIUM CHLORIDE
     Indication: RENAL REPLACEMENT THERAPY
     Route: 010
     Dates: start: 201702
  3. PRISM0CAL B22 [Suspect]
     Active Substance: BICARBONATE ION\CHLORIDE ION\DEXTROSE\LACTIC ACID\MAGNESIUM\POTASSIUM
     Indication: RENAL REPLACEMENT THERAPY
     Route: 010
     Dates: start: 201702, end: 201702
  4. HEMOSOL B0 HEMOFILTRAATIO- JA HEMODIALYYSINESTE [Suspect]
     Active Substance: CALCIUM CHLORIDE\DEXTROSE MONOHYDRATE\LACTIC ACID\MAGNESIUM CHLORIDE\POTASSIUM CHLORIDE\SODIUM BICARBONATE\SODIUM CHLORIDE
     Route: 010
     Dates: start: 201702, end: 201702
  5. HEPAFLEX 2,5 IU/ML INFUUSIONESTE, LIUOS [Suspect]
     Active Substance: HEPARIN SODIUM
     Indication: RENAL REPLACEMENT THERAPY
     Route: 010
     Dates: start: 201702, end: 201702

REACTIONS (3)
  - Thrombosis [Unknown]
  - Haemorrhage [Unknown]
  - Device issue [None]

NARRATIVE: CASE EVENT DATE: 201702
